FAERS Safety Report 23541377 (Version 1)
Quarter: 2024Q1

REPORT INFORMATION
  Report Type: Spontaneous
  Country: US (occurrence: US)
  Receive Date: 20240219
  Receipt Date: 20240219
  Transmission Date: 20240410
  Serious: No
  Sender: FDA-Public Use
  Company Number: US-009507513-2402USA003847

PATIENT
  Sex: Male

DRUGS (3)
  1. PRIMAXIN IV [Suspect]
     Active Substance: CILASTATIN SODIUM\IMIPENEM
     Indication: Mastoiditis fungal
     Dosage: UNK
     Dates: start: 202312
  2. AMIKACIN [Concomitant]
     Active Substance: AMIKACIN
     Indication: Mastoiditis fungal
     Dosage: UNK
     Dates: start: 202312
  3. TIGECYCLINE [Concomitant]
     Active Substance: TIGECYCLINE
     Indication: Mastoiditis fungal
     Dosage: UNK
     Dates: start: 202312

REACTIONS (1)
  - Drug ineffective for unapproved indication [Unknown]

NARRATIVE: CASE EVENT DATE: 20231201
